FAERS Safety Report 4845057-9 (Version None)
Quarter: 2005Q4

REPORT INFORMATION
  Report Type: 
  Country: None (occurrence: None)
  Receive Date: 20051205
  Receipt Date: 20050419
  Transmission Date: 20060501
  Serious: Yes (Death, Hospitalization)
  Sender: FDA-Public Use
  Company Number: US-MERCK-0504USA03828

PATIENT
  Age: 89 Year
  Sex: Female
  Weight: 41 kg

DRUGS (2)
  1. VIOXX [Suspect]
     Indication: ARTHRITIS
     Route: 048
     Dates: start: 20010101, end: 20031028
  2. TYLENOL [Concomitant]
     Route: 065

REACTIONS (11)
  - ACUTE MYOCARDIAL INFARCTION [None]
  - CEREBROVASCULAR ACCIDENT [None]
  - DYSPNOEA [None]
  - GAIT DISTURBANCE [None]
  - LEG AMPUTATION [None]
  - LIMB INJURY [None]
  - MENTAL STATUS CHANGES [None]
  - MYOCARDIAL INFARCTION [None]
  - ORGAN FAILURE [None]
  - POLYTRAUMATISM [None]
  - PULMONARY EMBOLISM [None]
